FAERS Safety Report 5509596-X (Version None)
Quarter: 2007Q4

REPORT INFORMATION
  Report Type: 
  Country: None (occurrence: None)
  Receive Date: 20071108
  Receipt Date: 20070713
  Transmission Date: 20080405
  Serious: Yes (Congenital Anomaly)
  Sender: FDA-Public Use
  Company Number: GB-LLY01-GB200707003941

PATIENT

DRUGS (4)
  1. HUMALOG [Suspect]
     Route: 064
  2. INSULIN GLARGINE [Concomitant]
     Route: 064
  3. FOLIC ACID [Concomitant]
  4. LEVOTHYROXINE SODIUM [Concomitant]

REACTIONS (2)
  - KIDNEY MALFORMATION [None]
  - LUNG DISORDER [None]
